FAERS Safety Report 10904224 (Version 1)
Quarter: 2015Q1

REPORT INFORMATION
  Report Type: Spontaneous
  Country: US (occurrence: None)
  Receive Date: 20150107
  Receipt Date: 20150107
  Transmission Date: 20150721
  Serious: No
  Sender: FDA-Public Use
  Company Number: 2014TUS012053

PATIENT
  Age: 59 Year
  Sex: Female
  Weight: 78.5 kg

DRUGS (3)
  1. CONTRAVE [Suspect]
     Active Substance: BUPROPION HYDROCHLORIDE\NALTREXONE HYDROCHLORIDE
     Indication: WEIGHT DECREASED
     Dosage: QAM,UNK, ORAL
     Route: 048
     Dates: start: 20141116, end: 20141117
  2. L-THYROXINE /00068001/ (LEVOTHYROXINE) [Concomitant]
  3. CONTRAVE [Suspect]
     Active Substance: BUPROPION HYDROCHLORIDE\NALTREXONE HYDROCHLORIDE
     Indication: OVERWEIGHT
     Dosage: QAM,UNK, ORAL
     Route: 048
     Dates: start: 20141116, end: 20141117

REACTIONS (5)
  - Abdominal pain upper [None]
  - Headache [None]
  - Dizziness [None]
  - Skin discolouration [None]
  - Nausea [None]

NARRATIVE: CASE EVENT DATE: 20141116
